FAERS Safety Report 5480679-6 (Version None)
Quarter: 2007Q4

REPORT INFORMATION
  Report Type: 
  Country: None (occurrence: None)
  Receive Date: 20071003
  Receipt Date: 20070910
  Transmission Date: 20080405
  Serious: Yes (Other)
  Sender: FDA-Public Use
  Company Number: 070904090

PATIENT
  Sex: Female

DRUGS (2)
  1. MUCINEX [Suspect]
     Indication: DRUG USE FOR UNKNOWN INDICATION
     Dosage: ONCE, ORAL
     Route: 048
     Dates: start: 20070909, end: 20070909
  2. INHALER NOS [Concomitant]

REACTIONS (1)
  - ASTHMA [None]
